FAERS Safety Report 10850413 (Version 1)
Quarter: 2015Q1

REPORT INFORMATION
  Report Type: Spontaneous
  Country: AU (occurrence: AU)
  Receive Date: 20150222
  Receipt Date: 20150222
  Transmission Date: 20150721
  Serious: Yes (Other)
  Sender: FDA-Public Use
  Company Number: PHHY2015AU016889

PATIENT
  Age: 47 Year
  Sex: Female

DRUGS (1)
  1. GILENYA [Suspect]
     Active Substance: FINGOLIMOD HYDROCHLORIDE
     Indication: MULTIPLE SCLEROSIS
     Dosage: 1 DF, QD
     Route: 065
     Dates: start: 20121111

REACTIONS (12)
  - Visual impairment [Unknown]
  - Feeding disorder [Unknown]
  - Urinary tract infection [Unknown]
  - Bipolar disorder [Unknown]
  - Oral candidiasis [Unknown]
  - Urinary retention [Unknown]
  - Malaise [Unknown]
  - Depression [Unknown]
  - Optic neuritis [Unknown]
  - Diarrhoea [Unknown]
  - Kidney infection [Unknown]
  - Pneumonia [Unknown]
